FAERS Safety Report 20064620 (Version 3)
Quarter: 2022Q1

REPORT INFORMATION
  Report Type: Spontaneous
  Country: AT (occurrence: AT)
  Receive Date: 20211112
  Receipt Date: 20220103
  Transmission Date: 20220423
  Serious: Yes (Hospitalization)
  Sender: FDA-Public Use
  Company Number: AT-BIOGEN-2016BI00221301

PATIENT
  Age: 44 Year
  Sex: Female

DRUGS (6)
  1. TYSABRI [Suspect]
     Active Substance: NATALIZUMAB
     Indication: Multiple sclerosis
     Dosage: 2ND DOSE ON 09 APR 2014, 3RD DOSE ON 22 MAY 2014.
     Route: 042
     Dates: start: 20140311
  2. TYSABRI [Suspect]
     Active Substance: NATALIZUMAB
     Route: 065
  3. TYSABRI [Suspect]
     Active Substance: NATALIZUMAB
     Route: 042
  4. CANNABIDIOL [Concomitant]
     Active Substance: CANNABIDIOL
     Indication: Sleep disorder
     Route: 065
  5. Glaukom [Concomitant]
     Indication: Product used for unknown indication
     Route: 065
  6. COVID-19 VACCINE [Concomitant]
     Indication: Product used for unknown indication
     Route: 065
     Dates: start: 202106, end: 202107

REACTIONS (15)
  - Relapsing-remitting multiple sclerosis [Unknown]
  - Menopausal symptoms [Unknown]
  - Fatigue [Unknown]
  - Spinal osteoarthritis [Unknown]
  - Osteochondrosis [Unknown]
  - Burning sensation [Unknown]
  - Paraesthesia [Unknown]
  - Limb discomfort [Unknown]
  - Respiratory tract infection [Unknown]
  - Migraine with aura [Unknown]
  - Hypersomnia [Unknown]
  - Vitamin D deficiency [Unknown]
  - Iron deficiency [Unknown]
  - Headache [Unknown]
  - Herpes zoster [Recovered/Resolved]

NARRATIVE: CASE EVENT DATE: 20140801
